FAERS Safety Report 20659988 (Version 1)
Quarter: 2022Q1

REPORT INFORMATION
  Report Type: Spontaneous
  Country: TR (occurrence: TR)
  Receive Date: 20220331
  Receipt Date: 20220331
  Transmission Date: 20220424
  Serious: Yes (Other)
  Sender: FDA-Public Use
  Company Number: TR-SLATE RUN PHARMACEUTICALS-22TR001004

PATIENT

DRUGS (8)
  1. VORICONAZOLE [Suspect]
     Active Substance: VORICONAZOLE
     Indication: Scedosporium infection
     Dosage: UNK
     Route: 047
  2. VORICONAZOLE [Suspect]
     Active Substance: VORICONAZOLE
     Indication: Keratitis fungal
     Dosage: UNK
     Route: 048
  3. VORICONAZOLE [Suspect]
     Active Substance: VORICONAZOLE
     Dosage: 200 MILLIGRAM, Q 12 HR
     Route: 042
  4. UNSPECIFIED INGREDIENT [Concomitant]
     Active Substance: UNSPECIFIED INGREDIENT
     Indication: Corneal abscess
     Dosage: UNK
     Route: 047
  5. UNSPECIFIED INGREDIENT [Concomitant]
     Active Substance: UNSPECIFIED INGREDIENT
     Indication: Corneal abscess
     Dosage: UNK
  6. VANCOMYCIN [Concomitant]
     Active Substance: VANCOMYCIN
     Indication: Corneal abscess
     Route: 047
  7. CEFTAZIDIME [Concomitant]
     Active Substance: CEFTAZIDIME
     Indication: Corneal abscess
     Dosage: UNK, EVERY HOUR
     Route: 047
  8. FLUZAMED [Concomitant]
     Indication: Corneal abscess
     Dosage: 0.3 % PERCENT, Q 3 HR
     Route: 047

REACTIONS (3)
  - Treatment failure [Recovered/Resolved]
  - Anterior chamber inflammation [Unknown]
  - Visual acuity reduced [Recovering/Resolving]
